FAERS Safety Report 14621160 (Version 2)
Quarter: 2018Q1

REPORT INFORMATION
  Report Type: Spontaneous
  Country: JP (occurrence: JP)
  Receive Date: 20180310
  Receipt Date: 20180326
  Transmission Date: 20180509
  Serious: Yes (Death, Other)
  Sender: FDA-Public Use
  Company Number: JP-AMGEN-JPNSP2018033613

PATIENT
  Age: 67 Year
  Sex: Female

DRUGS (14)
  1. GEBEN [Concomitant]
     Active Substance: SILVER SULFADIAZINE
     Indication: ULCER
     Dosage: UNK
     Route: 061
  2. CELECOX [Concomitant]
     Active Substance: CELECOXIB
     Indication: PAIN MANAGEMENT
     Dosage: UNK
     Route: 048
  3. NESP [Suspect]
     Active Substance: DARBEPOETIN ALFA
     Indication: PRODUCT USED FOR UNKNOWN INDICATION
     Dosage: UNK
     Route: 042
  4. RENAGEL [Concomitant]
     Active Substance: SEVELAMER HYDROCHLORIDE
     Indication: CALCIPHYLAXIS
     Dosage: UNK
     Route: 048
  5. CALONAL [Concomitant]
     Active Substance: ACETAMINOPHEN
     Indication: PAIN MANAGEMENT
     Dosage: UNK
     Route: 065
  6. REGPARA [Suspect]
     Active Substance: CINACALCET HYDROCHLORIDE
     Indication: CALCIPHYLAXIS
     Dosage: 25 MG, UNK
     Route: 048
  7. DETOXOL [Concomitant]
     Dosage: 10 G, 3 TIMES/WK
     Route: 042
  8. WARFARIN [Concomitant]
     Active Substance: WARFARIN
     Indication: ATRIAL FIBRILLATION
     Dosage: 1.75 MG, UNK
     Route: 048
  9. FOSRENOL [Concomitant]
     Active Substance: LANTHANUM CARBONATE
     Indication: CALCIPHYLAXIS
     Dosage: 750 MG, UNK
     Route: 048
  10. PROSTIN E2 [Concomitant]
     Active Substance: DINOPROSTONE
     Indication: VASODILATATION
     Dosage: UNK
     Route: 048
  11. TRAMCET [Concomitant]
     Active Substance: ACETAMINOPHEN\TRAMADOL
     Indication: PAIN MANAGEMENT
     Dosage: UNK
     Route: 048
  12. LYRICA [Concomitant]
     Active Substance: PREGABALIN
     Indication: PAIN MANAGEMENT
     Dosage: UNK
     Route: 048
  13. DUROTEP [Concomitant]
     Active Substance: FENTANYL
     Indication: PAIN MANAGEMENT
     Dosage: UNK
     Route: 062
  14. AZUNOL [Concomitant]
     Active Substance: SODIUM GUALENATE
     Indication: ULCER
     Dosage: UNK
     Route: 061

REACTIONS (3)
  - Anaemia [Unknown]
  - Hypoalbuminaemia [Unknown]
  - Sepsis [Fatal]
